FAERS Safety Report 18241745 (Version 1)
Quarter: 2020Q3

REPORT INFORMATION
  Report Type: Spontaneous
  Country: FR (occurrence: FR)
  Receive Date: 20200908
  Receipt Date: 20200908
  Transmission Date: 20201103
  Serious: Yes (Other)
  Sender: FDA-Public Use
  Company Number: FR-ACCORD-199043

PATIENT
  Age: 60 Year
  Sex: Male
  Weight: 93 kg

DRUGS (12)
  1. ONDANSETRON ACCORD [Suspect]
     Active Substance: ONDANSETRON
     Indication: CHEMOTHERAPY SIDE EFFECT PROPHYLAXIS
     Route: 041
     Dates: start: 20200519
  2. CETIRIZINE [Concomitant]
     Active Substance: CETIRIZINE HYDROCHLORIDE
     Dosage: STRENGTH: 10 MG
  3. INNOHEP [Concomitant]
     Active Substance: TINZAPARIN SODIUM
  4. LANSOPRAZOLE MYLAN [Concomitant]
     Active Substance: LANSOPRAZOLE
     Dosage: STRENGTH: 15 MG
  5. ULTIBRO [Concomitant]
     Active Substance: GLYCOPYRRONIUM\INDACATEROL
  6. METHYLPREDNISOLONE MYLAN [Suspect]
     Active Substance: METHYLPREDNISOLONE
     Indication: CHEMOTHERAPY SIDE EFFECT PROPHYLAXIS
     Route: 041
     Dates: start: 20200519
  7. TECENTRIQ [Suspect]
     Active Substance: ATEZOLIZUMAB
     Indication: SMALL CELL LUNG CANCER
     Route: 041
     Dates: start: 20200519
  8. EMEND [Suspect]
     Active Substance: APREPITANT
     Indication: CHEMOTHERAPY SIDE EFFECT PROPHYLAXIS
     Dosage: STRENGTH: 80 MG
     Route: 048
     Dates: start: 20200519
  9. CARBOPLATIN ACCORD [Suspect]
     Active Substance: CARBOPLATIN
     Indication: SMALL CELL LUNG CANCER
     Dosage: STRENGTH: 10 MG/ML
     Route: 041
     Dates: start: 20200519
  10. ETOPOSIDE. [Suspect]
     Active Substance: ETOPOSIDE
     Indication: SMALL CELL LUNG CANCER
     Route: 041
     Dates: start: 20200519
  11. EMEND [Suspect]
     Active Substance: APREPITANT
     Indication: CHEMOTHERAPY SIDE EFFECT PROPHYLAXIS
     Route: 048
     Dates: start: 20200519
  12. CORTANCYL [Concomitant]
     Active Substance: PREDNISONE
     Dosage: STRENGTH: 5 MG

REACTIONS (1)
  - Neuropathy peripheral [Not Recovered/Not Resolved]

NARRATIVE: CASE EVENT DATE: 20200519
